FAERS Safety Report 9223001 (Version 2)
Quarter: 2013Q2

REPORT INFORMATION
  Report Type: Report from Study
  Country: US (occurrence: US)
  Receive Date: 20130410
  Receipt Date: 20130418
  Transmission Date: 20140414
  Serious: No
  Sender: FDA-Public Use
  Company Number: US-VERTEX PHARMACEUTICALS INC.-2013-004659

PATIENT
  Age: 54 Year
  Sex: Male

DRUGS (6)
  1. VX-950 (TELAPREVIR) [Suspect]
     Indication: HEPATITIS C
     Dosage: 750 MG, TID
     Route: 048
     Dates: start: 20130320
  2. PEGASYS [Suspect]
     Indication: HEPATITIS C
     Dosage: 180 ?G, QW
     Route: 058
     Dates: start: 20130320
  3. RIBASPHERE [Suspect]
     Indication: HEPATITIS C
     Dosage: 600 MG, BID
     Route: 048
     Dates: start: 20130320
  4. ROPINIROLE [Concomitant]
     Dosage: 1 DF, TID
     Route: 048
  5. MIRTAZAPINE [Concomitant]
     Dosage: 1 DF, QD
     Route: 048
  6. ASPIRIN [Concomitant]
     Dosage: 1 DF, QD
     Route: 048

REACTIONS (2)
  - Fatigue [Unknown]
  - Rash [Not Recovered/Not Resolved]
